FAERS Safety Report 21863456 (Version 2)
Quarter: 2023Q1

REPORT INFORMATION
  Report Type: Spontaneous
  Country: US (occurrence: US)
  Receive Date: 20230115
  Receipt Date: 20230131
  Transmission Date: 20230417
  Serious: No
  Sender: FDA-Public Use
  Company Number: US-AMGEN-USASP2023001825

PATIENT
  Age: 66 Year
  Sex: Male

DRUGS (1)
  1. REPATHA [Suspect]
     Active Substance: EVOLOCUMAB
     Indication: Blood cholesterol abnormal
     Dosage: 140 MILLIGRAM, Q2WK
     Route: 058
     Dates: start: 2021

REACTIONS (4)
  - Device difficult to use [Recovering/Resolving]
  - Wrong technique in product usage process [Recovering/Resolving]
  - Accidental exposure to product [Recovering/Resolving]
  - Drug dose omission by device [Recovering/Resolving]

NARRATIVE: CASE EVENT DATE: 20230104
